FAERS Safety Report 16822695 (Version 1)
Quarter: 2019Q3

REPORT INFORMATION
  Report Type: Report from Study
  Country: BR (occurrence: BR)
  Receive Date: 20190918
  Receipt Date: 20190918
  Transmission Date: 20191005
  Serious: Yes (Life-Threatening, Hospitalization, Other)
  Sender: FDA-Public Use
  Company Number: BR-ROCHE-2335952

PATIENT
  Age: 51 Year
  Sex: Female
  Weight: 83 kg

DRUGS (5)
  1. XOLAIR [Suspect]
     Active Substance: OMALIZUMAB
     Indication: URTICARIA
     Route: 058
     Dates: start: 20190212
  2. NPH INSULIN [Concomitant]
     Active Substance: INSULIN BEEF
     Indication: DIABETES MELLITUS
     Dosage: 62 IU (28 IN MORNING, 14 AT LUNCH, 20 AT BEDTIME), TID (MORE THAN 10 YEARS AGO)
     Route: 058
  3. INSULIN, REGULAR [Concomitant]
     Active Substance: INSULIN NOS
     Indication: DIABETES MELLITUS
     Dosage: 46 IU(16 IN MORNING, 16 IN MORNING, 14 AFTER LUNCH), TID (MORE THAN 10 YEARS AGO)
     Route: 058
  4. XOLAIR [Suspect]
     Active Substance: OMALIZUMAB
     Route: 058
     Dates: start: 20190409, end: 20190409
  5. LEVOCETIRIZINE [Concomitant]
     Active Substance: LEVOCETIRIZINE
     Indication: URTICARIA
     Dosage: 1 DF, TID (MORE THAN 8 MONTHS AGO)
     Route: 048

REACTIONS (9)
  - Rash [Recovering/Resolving]
  - Gait disturbance [Recovering/Resolving]
  - Skin discolouration [Recovering/Resolving]
  - Urticaria [Recovering/Resolving]
  - Tongue haemorrhage [Recovered/Resolved]
  - Joint swelling [Recovering/Resolving]
  - Joint stiffness [Recovering/Resolving]
  - Arthralgia [Recovering/Resolving]
  - Platelet count decreased [Recovering/Resolving]

NARRATIVE: CASE EVENT DATE: 201904
